FAERS Safety Report 9436103 (Version 1)
Quarter: 2013Q3

REPORT INFORMATION
  Report Type: Report from Study
  Country: IT (occurrence: IT)
  Receive Date: 20130801
  Receipt Date: 20130801
  Transmission Date: 20140515
  Serious: Yes (Other)
  Sender: FDA-Public Use
  Company Number: IT-ROCHE-1253768

PATIENT
  Sex: 0

DRUGS (1)
  1. INTERFERON ALFA-2A [Suspect]
     Indication: ACUTE HEPATITIS C
     Route: 065

REACTIONS (6)
  - Hallucination [Unknown]
  - Thrombocytopenia [Unknown]
  - Neutropenia [Unknown]
  - Retinal telangiectasia [Unknown]
  - Pyrexia [Unknown]
  - Fatigue [Unknown]
